FAERS Safety Report 25268771 (Version 1)
Quarter: 2025Q2

REPORT INFORMATION
  Report Type: Spontaneous
  Country: US (occurrence: None)
  Receive Date: 20250504
  Receipt Date: 20250504
  Transmission Date: 20250717
  Serious: Yes (unspecified)
  Sender: FDA-CTU
  Company Number: None

PATIENT
  Age: 11 Year
  Sex: Male
  Weight: 28.8 kg

DRUGS (2)
  1. BROMPHENIRAMINE MALEATE\DEXTROMETHORPHAN HYDROBROMIDE\PSEUDOEPHEDRINE [Suspect]
     Active Substance: BROMPHENIRAMINE MALEATE\DEXTROMETHORPHAN HYDROBROMIDE\PSEUDOEPHEDRINE HYDROCHLORIDE
     Indication: Upper respiratory tract infection
     Dosage: 5 MG 4 TIMES A DAY ORAL ?
     Route: 048
     Dates: start: 20241106, end: 20241106
  2. Cefdinar [Concomitant]

REACTIONS (3)
  - Confusional state [None]
  - Hallucination [None]
  - Therapy cessation [None]

NARRATIVE: CASE EVENT DATE: 20241106
